FAERS Safety Report 5510673-8 (Version None)
Quarter: 2007Q4

REPORT INFORMATION
  Report Type: 
  Country: None (occurrence: None)
  Receive Date: 20071108
  Receipt Date: 20071108
  Transmission Date: 20080405
  Serious: Yes (Other)
  Sender: FDA-Public Use
  Company Number: A0692700A

PATIENT
  Age: 69 Year
  Sex: Female

DRUGS (1)
  1. BC ARTHRITIS STRENGTH POWDER [Suspect]
     Indication: BACK PAIN

REACTIONS (4)
  - DEPENDENCE [None]
  - HERPES ZOSTER [None]
  - PRURITUS [None]
  - SKIN ULCER [None]
